FAERS Safety Report 9613851 (Version 2)
Quarter: 2013Q4

REPORT INFORMATION
  Report Type: Spontaneous
  Country: DE (occurrence: DE)
  Receive Date: 20131010
  Receipt Date: 20131115
  Transmission Date: 20140711
  Serious: Yes (Hospitalization)
  Sender: FDA-Public Use
  Company Number: DE-US-EMD SERONO, INC.-7241997

PATIENT
  Age: 44 Year
  Sex: Female

DRUGS (1)
  1. REBIF [Suspect]
     Indication: MULTIPLE SCLEROSIS
     Route: 058
     Dates: start: 2003, end: 20130925

REACTIONS (3)
  - Glomerulonephritis minimal lesion [Not Recovered/Not Resolved]
  - Glomerulonephritis membranous [Not Recovered/Not Resolved]
  - Nephrotic syndrome [Not Recovered/Not Resolved]
